FAERS Safety Report 8319060-0 (Version None)
Quarter: 2012Q2

REPORT INFORMATION
  Report Type: 
  Country: None (occurrence: None)
  Receive Date: 20120427
  Receipt Date: 20120420
  Transmission Date: 20120825
  Serious: Yes (Hospitalization)
  Sender: FDA-Public Use
  Company Number: US-ACTELION-A-NJ2012-59212

PATIENT

DRUGS (14)
  1. COUMADIN [Concomitant]
  2. CLONAZEPAM [Concomitant]
  3. DIGOXIN [Concomitant]
  4. ADVAIR DISKUS 100/50 [Concomitant]
  5. SPIRONOLACTONE [Concomitant]
  6. LANTUS [Concomitant]
  7. ZANTAC [Concomitant]
  8. ALBUTEROL [Concomitant]
  9. TRAMADOL HCL [Concomitant]
     Dosage: UNK
  10. EPOPROSTENOL SODIUM [Suspect]
     Indication: PULMONARY ARTERIAL HYPERTENSION
     Dosage: 27.5 NG/KG, PER MIN
     Route: 041
     Dates: start: 20110302
  11. ALLEGRA [Concomitant]
  12. CRESTOR [Concomitant]
  13. GABAPENTIN [Concomitant]
  14. NOVOLOG [Concomitant]

REACTIONS (3)
  - ATRIAL FIBRILLATION [None]
  - DYSPNOEA [None]
  - PALPITATIONS [None]
